FAERS Safety Report 13072747 (Version 1)
Quarter: 2016Q4

REPORT INFORMATION
  Report Type: Spontaneous
  Country: US (occurrence: US)
  Receive Date: 20161229
  Receipt Date: 20161229
  Transmission Date: 20170207
  Serious: No
  Sender: FDA-Public Use
  Company Number: US-SA-2016SA052828

PATIENT
  Age: 66 Year
  Sex: Male

DRUGS (1)
  1. TAXOTERE [Suspect]
     Active Substance: DOCETAXEL
     Indication: PROSTATE CANCER
     Route: 065
     Dates: start: 201507, end: 20151111

REACTIONS (6)
  - Pain [Unknown]
  - Onychomadesis [Unknown]
  - Dysgeusia [Unknown]
  - White blood cell count decreased [Unknown]
  - Alopecia [Unknown]
  - Oral pain [Unknown]
